FAERS Safety Report 22613141 (Version 3)
Quarter: 2023Q2

REPORT INFORMATION
  Report Type: Report from Study
  Country: US (occurrence: US)
  Receive Date: 20230618
  Receipt Date: 20230620
  Transmission Date: 20230721
  Serious: No
  Sender: FDA-Public Use
  Company Number: US-ABBVIE-5291121

PATIENT
  Sex: Female

DRUGS (2)
  1. HUMIRA [Suspect]
     Active Substance: ADALIMUMAB
     Indication: Psoriasis
     Route: 058
     Dates: start: 20210612
  2. HUMIRA [Suspect]
     Active Substance: ADALIMUMAB
     Indication: Psoriatic arthropathy

REACTIONS (7)
  - Pruritus [Not Recovered/Not Resolved]
  - Pain in extremity [Not Recovered/Not Resolved]
  - Malaise [Not Recovered/Not Resolved]
  - Papule [Unknown]
  - Insomnia [Unknown]
  - Neck pain [Not Recovered/Not Resolved]
  - Gait disturbance [Not Recovered/Not Resolved]

NARRATIVE: CASE EVENT DATE: 20210101
